FAERS Safety Report 7753913-7 (Version None)
Quarter: 2011Q3

REPORT INFORMATION
  Report Type: 
  Country: None (occurrence: None)
  Receive Date: 20110915
  Receipt Date: 20110906
  Transmission Date: 20111222
  Serious: Yes (Other)
  Sender: FDA-Public Use
  Company Number: US-ASTRAZENECA-2011SE53386

PATIENT
  Age: 73 Year
  Sex: Male
  Weight: 63.5 kg

DRUGS (3)
  1. NEXIUM [Suspect]
     Indication: BARRETT'S OESOPHAGUS
     Route: 048
  2. MEGESTROL ACETATE [Concomitant]
     Indication: APPETITE DISORDER
  3. COLESTIPOL HYDROCHLORIDE [Concomitant]

REACTIONS (2)
  - PROSTATE CANCER [None]
  - OFF LABEL USE [None]
